FAERS Safety Report 7258411-5 (Version None)
Quarter: 2011Q1

REPORT INFORMATION
  Report Type: 
  Country: None (occurrence: None)
  Receive Date: 20110129
  Receipt Date: 20100831
  Transmission Date: 20110831
  Serious: No
  Sender: FDA-Public Use
  Company Number: US-ABBOTT-10P-163-0668649-00

PATIENT
  Sex: Male
  Weight: 116.68 kg

DRUGS (9)
  1. MIRAPEX [Concomitant]
     Indication: PRODUCT USED FOR UNKNOWN INDICATION
  2. DIVALAPREX [Concomitant]
     Indication: BIPOLAR DISORDER
  3. HUMIRA [Suspect]
     Indication: CROHN'S DISEASE
     Dates: start: 20100601
  4. TRAMADOL HCL [Concomitant]
     Indication: PAIN
  5. DICYCLOMINE [Concomitant]
     Indication: CROHN'S DISEASE
  6. PROPRANOLOL [Concomitant]
     Indication: HEADACHE
  7. LORAZEPAM [Concomitant]
     Indication: ANXIETY
  8. APRISO [Concomitant]
     Indication: CROHN'S DISEASE
  9. CYMBALTA [Concomitant]
     Indication: DEPRESSION

REACTIONS (4)
  - INJECTION SITE ANAESTHESIA [None]
  - INJECTION SITE PAIN [None]
  - DEVICE MALFUNCTION [None]
  - INJECTION SITE HAEMORRHAGE [None]
